FAERS Safety Report 19616294 (Version 1)
Quarter: 2021Q3

REPORT INFORMATION
  Report Type: Spontaneous
  Country: US (occurrence: US)
  Receive Date: 20210727
  Receipt Date: 20210727
  Transmission Date: 20211014
  Serious: Yes (Disabling, Other)
  Sender: FDA-Public Use
  Company Number: US-REGENERON PHARMACEUTICALS, INC.-2021-63374

PATIENT

DRUGS (2)
  1. EYLEA [Suspect]
     Active Substance: AFLIBERCEPT
     Indication: NEOVASCULAR AGE-RELATED MACULAR DEGENERATION
     Dosage: 2 MG, 7 WEEKS, LEFT EYE
     Route: 031
     Dates: start: 20191209
  2. EYLEA [Suspect]
     Active Substance: AFLIBERCEPT
     Dosage: 2 UNK, 7WEEKS, LEFT EYE
     Route: 031
     Dates: start: 20210617, end: 20210617

REACTIONS (4)
  - Vitrectomy [Unknown]
  - Vitritis infective [Recovered/Resolved]
  - Vascular occlusion [Recovered/Resolved]
  - Blindness [Not Recovered/Not Resolved]

NARRATIVE: CASE EVENT DATE: 20210617
